FAERS Safety Report 8272517-3 (Version None)
Quarter: 2012Q2

REPORT INFORMATION
  Report Type: 
  Country: None (occurrence: None)
  Receive Date: 20120410
  Receipt Date: 20120328
  Transmission Date: 20120825
  Serious: Yes (Other)
  Sender: FDA-Public Use
  Company Number: FR-TEVA-331000ISR

PATIENT
  Sex: Female

DRUGS (3)
  1. COPAXONE [Suspect]
     Indication: MULTIPLE SCLEROSIS
     Dates: start: 20110601, end: 20110101
  2. COPAXONE [Suspect]
     Dates: start: 20120101
  3. VAGINAL CONTRACEPTIVE RING [Concomitant]
     Indication: CONTRACEPTION
     Route: 067

REACTIONS (7)
  - BACK PAIN [None]
  - APATHY [None]
  - DEPRESSION [None]
  - NEGATIVE THOUGHTS [None]
  - NERVOUSNESS [None]
  - FATIGUE [None]
  - BLOOD CREATINE PHOSPHOKINASE INCREASED [None]
